FAERS Safety Report 18418429 (Version 1)
Quarter: 2020Q4

REPORT INFORMATION
  Report Type: Spontaneous
  Country: FR (occurrence: FR)
  Receive Date: 20201023
  Receipt Date: 20201023
  Transmission Date: 20210114
  Serious: Yes (Other)
  Sender: FDA-Public Use
  Company Number: FR-SUN PHARMACEUTICAL INDUSTRIES LTD-2020RR-265020

PATIENT
  Age: 73 Year
  Sex: Female
  Weight: 60 kg

DRUGS (4)
  1. QUETIAPINE. [Suspect]
     Active Substance: QUETIAPINE
     Indication: PSYCHOTIC BEHAVIOUR
     Dosage: 300 MILLIGRAM, DAILY
     Route: 048
     Dates: start: 20200330
  2. PAROXETINE. [Suspect]
     Active Substance: PAROXETINE
     Indication: DEPRESSION
     Dosage: 20 MILLIGRAM, DAILY
     Route: 048
     Dates: start: 20200513, end: 20200526
  3. MIRTAZAPINE. [Suspect]
     Active Substance: MIRTAZAPINE
     Indication: DEPRESSION
     Dosage: 45 MILLIGRAM, DAILY
     Route: 048
     Dates: start: 20190713, end: 20200601
  4. TIAPRIDE BASE [Suspect]
     Active Substance: TIAPRIDE HYDROCHLORIDE
     Indication: PSYCHOTIC BEHAVIOUR
     Dosage: 225 MILLIGRAM, DAILY
     Route: 048
     Dates: start: 20200303

REACTIONS (1)
  - Urinary retention [Not Recovered/Not Resolved]

NARRATIVE: CASE EVENT DATE: 20200522
